FAERS Safety Report 13133342 (Version 1)
Quarter: 2017Q1

REPORT INFORMATION
  Report Type: Report from Study
  Country: BR (occurrence: BR)
  Receive Date: 20170120
  Receipt Date: 20170120
  Transmission Date: 20170428
  Serious: Yes (Other)
  Sender: FDA-Public Use
  Company Number: BR-JNJFOC-20170116969

PATIENT
  Sex: Female
  Weight: 64 kg

DRUGS (3)
  1. TECNOMET [Concomitant]
     Active Substance: METHOTREXATE
     Route: 065
  2. SIMPONI [Suspect]
     Active Substance: GOLIMUMAB
     Indication: RHEUMATOID ARTHRITIS
     Route: 058
     Dates: start: 20140604
  3. ESOMEX [Concomitant]
     Active Substance: ESOMEPRAZOLE MAGNESIUM
     Route: 065

REACTIONS (5)
  - Decreased immune responsiveness [Unknown]
  - Depression [Unknown]
  - Pneumonia [Recovering/Resolving]
  - Dysphonia [Unknown]
  - Gastrooesophageal reflux disease [Unknown]
